FAERS Safety Report 18376462 (Version 2)
Quarter: 2020Q4

REPORT INFORMATION
  Report Type: Spontaneous
  Country: US (occurrence: US)
  Receive Date: 20201013
  Receipt Date: 20201125
  Transmission Date: 20210114
  Serious: Yes (Death)
  Sender: FDA-Public Use
  Company Number: US-ULTRAGENYX PHARMACEUTICAL INC.-US-UGNX-20-00196

PATIENT
  Age: 3 Day
  Sex: Male
  Weight: 2.95 kg

DRUGS (6)
  1. MILRINONE [Concomitant]
     Active Substance: MILRINONE
     Indication: RENAL IMPAIRMENT
  2. DOJOLVI [Suspect]
     Active Substance: TRIHEPTANOIN
     Indication: FATTY ACID OXIDATION DISORDER
     Dosage: TWO DOSES GIVEN
     Route: 048
     Dates: start: 20200929, end: 20200929
  3. MILRINONE [Concomitant]
     Active Substance: MILRINONE
     Indication: PRODUCT USED FOR UNKNOWN INDICATION
     Dosage: STARTED OVERNIGHT BUT HELD EARLY MORNING ON 29-SEP DUE TO SIGNIFICANT HYPOTENSION AND CONCERN FOR WO
     Dates: start: 20200928, end: 20200929
  4. CEFOTAXIME [Concomitant]
     Active Substance: CEFOTAXIME SODIUM
     Indication: PRODUCT USED FOR UNKNOWN INDICATION
     Dosage: RENALLY DOSED
  5. EPINEPHRINE. [Concomitant]
     Active Substance: EPINEPHRINE
     Indication: HYPOTENSION
     Dosage: STARTED OVERNIGHT WITH MAX DOSE 0.08 MCG/KG/MIN
     Dates: start: 20200928, end: 20200929
  6. AMPICILIN [Concomitant]
     Active Substance: AMPICILLIN
     Indication: PRODUCT USED FOR UNKNOWN INDICATION
     Dosage: RENALLY DOSED

REACTIONS (2)
  - Ventricular arrhythmia [Fatal]
  - Multiple organ dysfunction syndrome [Fatal]

NARRATIVE: CASE EVENT DATE: 20200929
